FAERS Safety Report 9411151 (Version 3)
Quarter: 2013Q3

REPORT INFORMATION
  Report Type: Report from Study
  Country: BR (occurrence: BR)
  Receive Date: 20130721
  Receipt Date: 20130821
  Transmission Date: 20140515
  Serious: Yes (Death, Other)
  Sender: FDA-Public Use
  Company Number: PHHY2013BR076761

PATIENT
  Age: 89 Year
  Sex: Female
  Weight: 47.1 kg

DRUGS (2)
  1. EXELON PATCH [Suspect]
     Indication: DEMENTIA ALZHEIMER^S TYPE
     Dosage: 9.5 MG, DAILY
     Route: 062
     Dates: start: 201304, end: 20130620
  2. TRILEPTAL [Suspect]
     Indication: CONVULSION
     Dosage: 2 DF (300 MG), DAILY
     Dates: end: 20130618

REACTIONS (6)
  - Gastrointestinal disorder [Fatal]
  - Diverticulitis [Unknown]
  - Dyspepsia [Unknown]
  - Abdominal pain [Not Recovered/Not Resolved]
  - Dysphagia [Unknown]
  - Drug ineffective [Not Recovered/Not Resolved]
